FAERS Safety Report 18612344 (Version 3)
Quarter: 2021Q2

REPORT INFORMATION
  Report Type: Spontaneous
  Country: TR (occurrence: TR)
  Receive Date: 20201214
  Receipt Date: 20210517
  Transmission Date: 20210717
  Serious: No
  Sender: FDA-Public Use
  Company Number: TR-JNJFOC-20201208769

PATIENT
  Sex: Male
  Weight: 117 kg

DRUGS (3)
  1. STELARA [Suspect]
     Active Substance: USTEKINUMAB
     Indication: PSORIASIS
     Route: 058
     Dates: start: 2018
  2. BELOC [ATENOLOL] [Concomitant]
     Active Substance: ATENOLOL
     Route: 048
     Dates: start: 2018
  3. STELARA [Suspect]
     Active Substance: USTEKINUMAB

REACTIONS (7)
  - Headache [Recovered/Resolved]
  - Device issue [Unknown]
  - Peripheral swelling [Unknown]
  - Underdose [Unknown]
  - Renal pain [Unknown]
  - Weight increased [Unknown]
  - Pain in extremity [Unknown]

NARRATIVE: CASE EVENT DATE: 202001
